FAERS Safety Report 7737246-0 (Version None)
Quarter: 2011Q3

REPORT INFORMATION
  Report Type: 
  Country: None (occurrence: None)
  Receive Date: 20110908
  Receipt Date: 20110824
  Transmission Date: 20111222
  Serious: Yes (Hospitalization, Other)
  Sender: FDA-Public Use
  Company Number: TR-JNJFOC-20110901013

PATIENT
  Age: 7 Year
  Sex: Male

DRUGS (10)
  1. PHENOBARBITAL TAB [Suspect]
     Indication: CONVULSION
     Route: 065
  2. PHENYTOIN [Suspect]
     Indication: STATUS EPILEPTICUS
     Dosage: 15-20 MG/KG MAXIMUM 1 G
     Route: 042
  3. MIDAZOLAM HCL [Suspect]
     Indication: STATUS EPILEPTICUS
     Dosage: 0.1 MG/KG, MAXIMUM 5 MG
     Route: 002
  4. TOPIRAMATE [Suspect]
     Route: 050
  5. PHENOBARBITAL TAB [Suspect]
     Indication: STATUS EPILEPTICUS
     Dosage: 15-20 MG/KG MAXIMUM 1G
     Route: 042
  6. VALPROIC ACID [Suspect]
     Indication: STATUS EPILEPTICUS
     Dosage: 20-30 MG/KG MAXIMUM 500 MG
     Route: 042
  7. TOPIRAMATE [Suspect]
     Indication: STATUS EPILEPTICUS
     Dosage: 20 MG/KG/DAY IN 60 HOURS
     Route: 050
  8. TOPIRAMATE [Suspect]
     Route: 050
  9. MIDAZOLAM HCL [Suspect]
     Dosage: 0.5 MG/KG BOLUS AND THEN START 2 UG/KG/MIN, MAXIMUM 24 UG/KG/MIN
     Route: 042
  10. LEVETIRACETAM [Suspect]
     Indication: CONVULSION
     Route: 065

REACTIONS (3)
  - DRUG EFFECT DECREASED [None]
  - INCORRECT ROUTE OF DRUG ADMINISTRATION [None]
  - METABOLIC ACIDOSIS [None]
